FAERS Safety Report 9181098 (Version 1)
Quarter: 2013Q1

REPORT INFORMATION
  Report Type: Spontaneous
  Country: US (occurrence: US)
  Receive Date: 20130322
  Receipt Date: 20130322
  Transmission Date: 20140127
  Serious: Yes (Other)
  Sender: FDA-Public Use
  Company Number: US-BAYER-2013-033690

PATIENT
  Sex: Female

DRUGS (1)
  1. GIANVI [Suspect]
     Route: 048

REACTIONS (3)
  - Pregnancy on oral contraceptive [None]
  - Menstruation delayed [None]
  - Inappropriate schedule of drug administration [None]
